FAERS Safety Report 8822928 (Version 2)
Quarter: 2013Q1

REPORT INFORMATION
  Report Type: Spontaneous
  Country: BR (occurrence: BR)
  Receive Date: 20121003
  Receipt Date: 20130213
  Transmission Date: 20140127
  Serious: Yes (Hospitalization, Other)
  Sender: FDA-Public Use
  Company Number: PHHY2012BR085349

PATIENT
  Sex: Male
  Weight: 75 kg

DRUGS (1)
  1. DIOVAN AMLO FIX [Suspect]
     Indication: CORONARY ARTERY BYPASS
     Dosage: 320/5 MG, DAILY
     Route: 048
     Dates: end: 201210

REACTIONS (4)
  - Bronchospasm [Recovered/Resolved]
  - Diabetes mellitus [Unknown]
  - Asthma [Recovered/Resolved]
  - Cataract [Unknown]
